FAERS Safety Report 6863406-7 (Version None)
Quarter: 2010Q3

REPORT INFORMATION
  Report Type: 
  Country: None (occurrence: None)
  Receive Date: 20100719
  Receipt Date: 20100702
  Transmission Date: 20110219
  Serious: Yes (Hospitalization)
  Sender: FDA-Public Use
  Company Number: CIO10009369

PATIENT
  Age: 60 Year
  Sex: Female

DRUGS (3)
  1. PRO-HEALTH ORAL RINSE, FLAVOR UNKNOWN (CETYLPYRIDINIUM CHLORIDE 0.07%) [Suspect]
     Dosage: INTRAORAL
     Route: 048
  2. FLAGYL [Concomitant]
  3. HYDROCHLOROTHIAZIDE [Concomitant]

REACTIONS (4)
  - DIZZINESS [None]
  - DYSGEUSIA [None]
  - MALAISE [None]
  - NAUSEA [None]
